FAERS Safety Report 22890141 (Version 3)
Quarter: 2023Q4

REPORT INFORMATION
  Report Type: Spontaneous
  Country: BR (occurrence: BR)
  Receive Date: 20230831
  Receipt Date: 20231206
  Transmission Date: 20240110
  Serious: Yes (Hospitalization, Other)
  Sender: FDA-Public Use
  Company Number: BR-009507513-2308BRA010750

PATIENT

DRUGS (2)
  1. KEYTRUDA [Suspect]
     Active Substance: PEMBROLIZUMAB
     Indication: Triple negative breast cancer
     Dosage: UNK
     Dates: start: 2023
  2. KEYTRUDA [Suspect]
     Active Substance: PEMBROLIZUMAB
     Dosage: DAY 1, CYCLE 8 OF PEMBROLIZUMAB (KEYTRUDA)
     Dates: start: 20230615

REACTIONS (2)
  - Medical device site thrombosis [Unknown]
  - Device related infection [Unknown]

NARRATIVE: CASE EVENT DATE: 20230101
